FAERS Safety Report 23493295 (Version 1)
Quarter: 2024Q1

REPORT INFORMATION
  Report Type: Spontaneous
  Country: KW (occurrence: KW)
  Receive Date: 20240207
  Receipt Date: 20240207
  Transmission Date: 20240410
  Serious: Yes (Other)
  Sender: FDA-Public Use
  Company Number: KW-AMERICAN REGENT INC-2024000390

PATIENT
  Sex: Female

DRUGS (1)
  1. FERINJECT [Suspect]
     Active Substance: FERRIC CARBOXYMALTOSE
     Indication: Iron deficiency anaemia
     Dosage: DILUTED IN 250 ML OF SODIUM CHLORIDE (NACL) (1000 MG,1 IN 1 WK)
     Dates: start: 202311, end: 202311

REACTIONS (3)
  - Circulatory collapse [Unknown]
  - Hypophosphataemia [Recovered/Resolved]
  - Pain [Unknown]

NARRATIVE: CASE EVENT DATE: 20230101
